FAERS Safety Report 20319960 (Version 1)
Quarter: 2022Q1

REPORT INFORMATION
  Report Type: Spontaneous
  Country: US (occurrence: US)
  Receive Date: 20220111
  Receipt Date: 20220111
  Transmission Date: 20220423
  Serious: Yes (Death, Life-Threatening, Hospitalization, Other)
  Sender: FDA-Public Use
  Company Number: US-AMGEN-USASP2022000891

PATIENT

DRUGS (3)
  1. NEULASTA [Suspect]
     Active Substance: PEGFILGRASTIM
     Indication: Prophylaxis
     Dosage: 6 MILLIGRAM, AFTER CHEMO
     Route: 065
  2. TAXOTERE [Concomitant]
     Active Substance: DOCETAXEL
     Indication: Invasive breast carcinoma
     Dosage: UNK UNK, CYCLICAL
  3. CYCLOPHOSPHAMIDE [Concomitant]
     Active Substance: CYCLOPHOSPHAMIDE
     Indication: Invasive breast carcinoma
     Dosage: UNK UNK, CYCLICAL

REACTIONS (6)
  - Neutropenia [Unknown]
  - Febrile neutropenia [Unknown]
  - Infection [Unknown]
  - Adverse event [Unknown]
  - Death [Fatal]
  - Laboratory test abnormal [Unknown]
